FAERS Safety Report 6249103-X (Version None)
Quarter: 2009Q2

REPORT INFORMATION
  Report Type: 
  Country: None (occurrence: None)
  Receive Date: 20090624
  Receipt Date: 20090624
  Transmission Date: 20091009
  Serious: Yes (Hospitalization)
  Sender: FDA-Public Use
  Company Number: None

PATIENT
  Age: 91 Year
  Sex: Male

DRUGS (1)
  1. NILUTAMIDE [Suspect]
     Indication: PROSTATE CANCER METASTATIC
     Dosage: 150 MG DAILY PO
     Route: 048

REACTIONS (1)
  - INTERSTITIAL LUNG DISEASE [None]
